FAERS Safety Report 7465387-4 (Version None)
Quarter: 2011Q2

REPORT INFORMATION
  Report Type: 
  Country: None (occurrence: None)
  Receive Date: 20110509
  Receipt Date: 20110504
  Transmission Date: 20111010
  Serious: Yes (Hospitalization, Disabling)
  Sender: FDA-Public Use
  Company Number: CA-ROCHE-639774

PATIENT
  Sex: Female
  Weight: 72.2 kg

DRUGS (8)
  1. HERCEPTIN [Suspect]
     Dosage: DOSAGE REGIMEN NOT PER PROTOCOL. (OFF-STUDY). MONOTHERAPY.
     Route: 042
     Dates: start: 20090814, end: 20100317
  2. DOCETAXEL [Suspect]
     Dosage: DATE OF LAST DOSE PRIOR TO SAE: 10 JUNE 2009, FORM VIALS, DOSE LEVEL: 75 MG/M2
     Route: 042
     Dates: start: 20090318, end: 20090723
  3. CARBOPLATIN [Suspect]
     Dosage: LAST DOSE PRIOR TO SAE: 10 JUNE 2009, DOSE LEVEL: 6 AUC, FORM: VIALS
     Route: 042
     Dates: start: 20090318, end: 20090723
  4. NORVASC [Concomitant]
     Dates: start: 20090419
  5. HYDROCHLOROTHIAZIDE [Concomitant]
     Dates: start: 20090419
  6. HERCEPTIN [Suspect]
     Dosage: DOSE LEVEL: 6 MG/KG, FORM: VIALS, LAST DOSE PRIOR TO SAE: 10 JUNE 2009
     Route: 042
     Dates: start: 20090318, end: 20090723
  7. PANTOLOC [Concomitant]
     Dates: start: 20090428
  8. HERCEPTIN [Suspect]
     Dosage: FORM: VIALS, DOSE LEVEL 15 MG/KG, LAST DOSE PRIOR TO SAE: 10 JUNE 2009
     Route: 042
     Dates: start: 20090318, end: 20090723

REACTIONS (2)
  - FEBRILE NEUTROPENIA [None]
  - ENCEPHALOPATHY [None]
